FAERS Safety Report 7687580-8 (Version None)
Quarter: 2011Q3

REPORT INFORMATION
  Report Type: 
  Country: None (occurrence: None)
  Receive Date: 20110817
  Receipt Date: 20101011
  Transmission Date: 20111222
  Serious: Yes (Hospitalization, Disabling)
  Sender: FDA-Public Use
  Company Number: US-BAYER-201036746NA

PATIENT
  Age: 58 Year
  Sex: Male

DRUGS (4)
  1. ASPIRIN [Concomitant]
     Indication: PREMEDICATION
     Route: 048
  2. ACETAMINOPHEN [Concomitant]
     Indication: PREMEDICATION
     Dosage: 2 TYLENOL  BEFORE INJECTION
  3. BETASERON [Suspect]
     Route: 058
     Dates: start: 20101011
  4. BETASERON [Suspect]
     Indication: MULTIPLE SCLEROSIS
     Route: 058
     Dates: start: 20080126, end: 20080421

REACTIONS (2)
  - SCIATICA [None]
  - MUSCULAR WEAKNESS [None]
